FAERS Safety Report 6911380-7 (Version None)
Quarter: 2010Q3

REPORT INFORMATION
  Report Type: 
  Country: None (occurrence: None)
  Receive Date: 20100806
  Receipt Date: 20100727
  Transmission Date: 20110219
  Serious: Yes (Other)
  Sender: FDA-Public Use
  Company Number: US-ABBOTT-10P-163-0661187-00

PATIENT
  Sex: Female
  Weight: 100.33 kg

DRUGS (6)
  1. SYNTHROID [Suspect]
     Indication: HYPOTHYROIDISM
     Route: 048
     Dates: start: 20040801, end: 20050101
  2. SYNTHROID [Suspect]
     Indication: THYROID CANCER
     Route: 048
     Dates: start: 20050101
  3. LEVOXYL [Suspect]
     Indication: HYPOTHYROIDISM
     Route: 048
     Dates: start: 20050101, end: 20050101
  4. LEVOXYL [Suspect]
     Route: 048
     Dates: start: 20050101, end: 20050101
  5. VITAMIN D3 [Concomitant]
     Indication: PRODUCT USED FOR UNKNOWN INDICATION
  6. ACETAMINOPHEN [Concomitant]
     Indication: PRODUCT USED FOR UNKNOWN INDICATION

REACTIONS (2)
  - PALPITATIONS [None]
  - THYROIDECTOMY [None]
